FAERS Safety Report 5971326-5 (Version None)
Quarter: 2008Q4

REPORT INFORMATION
  Report Type: 
  Country: None (occurrence: None)
  Receive Date: 20081128
  Receipt Date: 20081124
  Transmission Date: 20090506
  Serious: Yes (Hospitalization)
  Sender: FDA-Public Use
  Company Number: US-PFIZER INC-2008099680

PATIENT
  Age: 81 Year
  Sex: Male

DRUGS (29)
  1. SUTENT [Suspect]
     Indication: RENAL CELL CARCINOMA
     Dosage: DAILY DOSE:50MG
     Route: 048
     Dates: start: 20080926, end: 20081003
  2. COMBIGAN [Concomitant]
     Dosage: TEXT:0.2-0.5% OP SOLN-FREQ:1 DROP EACH EYE DAILY
     Route: 047
  3. VICODIN [Concomitant]
     Dosage: TEXT:5-500 MG-FREQ:1 TABLET AT HS AND PRN
     Route: 048
  4. PROCHLORPERAZINE MALEATE [Concomitant]
     Indication: NAUSEA
     Dosage: TEXT:10 MG-FREQ:1 TABLET Q 6 HRS PRN
     Route: 048
  5. PROCHLORPERAZINE MALEATE [Concomitant]
     Indication: VOMITING
  6. IMDUR [Concomitant]
     Dosage: TEXT:TB24-FREQ:DAILY
     Route: 048
  7. FERROUS SULFATE TAB [Concomitant]
     Dosage: TEXT:#4 325MG-FREQ:DAILY
  8. LOTENSIN [Concomitant]
     Dosage: TEXT:20MG-FREQ:BID
     Route: 048
  9. K-DUR [Concomitant]
     Dosage: TEXT:20MEQ-FREQ:DAILY
     Route: 048
  10. TOPROL-XL [Concomitant]
     Dosage: TEXT:100MG TB24-FREQ:DAILY
     Route: 048
  11. CALCIUM [Concomitant]
     Dosage: TEXT:500MG-FREQ:BID
     Route: 048
  12. LANOXIN [Concomitant]
     Dosage: TEXT:0.125MG-FREQ:DAILY
     Route: 048
  13. CARDURA [Concomitant]
     Dosage: TEXT:2MG-FREQ:DAILY
     Route: 048
  14. TRICOR [Concomitant]
     Dosage: TEXT:145MG-FREQ:DAILY
     Route: 048
  15. BACID [Concomitant]
     Route: 048
  16. FLONASE [Concomitant]
     Dosage: TEXT:50MCG/ACT NA-FREQ:DAILY
  17. XALATAN [Concomitant]
     Dosage: TEXT:0.005%-FREQ:DAILY
     Route: 047
  18. HYDROCHLOROTHIAZIDE [Concomitant]
     Dosage: TEXT:25MG-FREQ:BID
     Route: 048
  19. NEXIUM [Concomitant]
     Dosage: TEXT:40MG-FREQ:DAILY
     Route: 048
  20. PREDNISONE TAB [Concomitant]
     Dosage: TEXT:0.5MG (1/2 X 1MG)-FREQ:DAILY
     Route: 048
  21. SALSALATE [Concomitant]
     Dosage: TEXT:750MG-FREQ:BID
     Route: 048
  22. MULTI-VITAMINS [Concomitant]
     Dosage: FREQ:DAILY
     Route: 048
  23. VITAMIN E [Concomitant]
     Dosage: DAILY DOSE:400MG-FREQ:DAILY
     Route: 048
  24. ASCORBIC ACID [Concomitant]
     Dosage: TEXT:1000MG-FREQ:DAILY
     Route: 048
  25. VITAMIN B1 TAB [Concomitant]
     Dosage: TEXT:250MG-FREQ:DAILY
     Route: 048
  26. COLACE [Concomitant]
     Dosage: TEXT:100MG-FREQ:DAILY
     Route: 048
  27. XANAX [Concomitant]
     Dosage: TEXT:0.5MG-FREQ:DAILY
     Route: 048
  28. NORVASC [Concomitant]
     Dosage: TEXT:10MG-FREQ:DAILY
     Route: 048
  29. ACETYLSALICYLIC ACID SRT [Concomitant]
     Dosage: TEXT:162MG
     Route: 048

REACTIONS (4)
  - ASTHENIA [None]
  - DISORIENTATION [None]
  - DYSPNOEA [None]
  - PYREXIA [None]
